FAERS Safety Report 5875134-5 (Version None)
Quarter: 2008Q3

REPORT INFORMATION
  Report Type: 
  Country: None (occurrence: None)
  Receive Date: 20080909
  Receipt Date: 20080901
  Transmission Date: 20090109
  Serious: Yes (Other)
  Sender: FDA-Public Use
  Company Number: B0535843A

PATIENT
  Age: 65 Year
  Sex: Male

DRUGS (1)
  1. REQUIP XL [Suspect]
     Indication: PARKINSON'S DISEASE
     Route: 048

REACTIONS (1)
  - PSYCHOTIC DISORDER [None]
